FAERS Safety Report 4696877-5 (Version None)
Quarter: 2005Q2

REPORT INFORMATION
  Report Type: 
  Country: None (occurrence: None)
  Receive Date: 20050622
  Receipt Date: 20050506
  Transmission Date: 20051028
  Serious: Yes (Hospitalization, Disabling)
  Sender: FDA-Public Use
  Company Number: GB-AMGEN-UK131821

PATIENT
  Sex: Male
  Weight: 45 kg

DRUGS (11)
  1. NEULASTA [Suspect]
     Indication: CHEMOTHERAPY
     Route: 058
     Dates: start: 20050426, end: 20050426
  2. VINCRISTINE [Concomitant]
     Route: 065
     Dates: start: 20050401
  3. IFOSFAMIDE [Concomitant]
     Route: 065
     Dates: start: 20050401
  4. DOXORUBICIN HCL [Concomitant]
     Route: 065
     Dates: start: 20050401
  5. ETOPOSIDE [Concomitant]
     Route: 065
     Dates: start: 20050401
  6. MORPHINE [Concomitant]
     Route: 048
     Dates: start: 20050201
  7. COTRIM [Concomitant]
     Route: 048
     Dates: start: 20050422
  8. AMITRIPTYLINE HCL [Concomitant]
     Route: 048
  9. ACETAMINOPHEN [Concomitant]
     Route: 048
  10. DICLOFENAC [Concomitant]
     Route: 048
     Dates: start: 20050401
  11. DEXAMETHASONE [Concomitant]
     Route: 065
     Dates: start: 20050426

REACTIONS (5)
  - DYSAESTHESIA [None]
  - ERYTHEMA [None]
  - NEUTROPENIC SEPSIS [None]
  - OEDEMA PERIPHERAL [None]
  - PALMAR-PLANTAR ERYTHRODYSAESTHESIA SYNDROME [None]
